FAERS Safety Report 6155954-2 (Version None)
Quarter: 2009Q2

REPORT INFORMATION
  Report Type: 
  Country: None (occurrence: None)
  Receive Date: 20090415
  Receipt Date: 20090414
  Transmission Date: 20091009
  Serious: Yes (Hospitalization)
  Sender: FDA-Public Use
  Company Number: KR-BRISTOL-MYERS SQUIBB COMPANY-14560841

PATIENT
  Age: 45 Year
  Sex: Male
  Weight: 61 kg

DRUGS (8)
  1. TAXOL [Suspect]
     Indication: NON-SMALL CELL LUNG CANCER
     Dosage: THERAPY ONGOING
     Dates: start: 20090206, end: 20090206
  2. CARBOSIN [Suspect]
     Indication: NON-SMALL CELL LUNG CANCER
     Dosage: THERAPY ONGOING
     Route: 042
     Dates: start: 20090206, end: 20090206
  3. MAGNESIUM OXIDE [Concomitant]
     Dates: start: 20090305
  4. CODEINE [Concomitant]
     Dates: start: 20090305
  5. AMBROXOL [Concomitant]
     Dates: start: 20090305
  6. LEVOFLOXACIN [Concomitant]
     Dates: start: 20090305
  7. METRONIDAZOLE [Concomitant]
     Dates: start: 20090305
  8. ACEBROPHYLLINE [Concomitant]
     Dates: start: 20090305

REACTIONS (1)
  - PNEUMONIA ASPIRATION [None]
